FAERS Safety Report 8392727-4 (Version None)
Quarter: 2012Q2

REPORT INFORMATION
  Report Type: 
  Country: None (occurrence: None)
  Receive Date: 20120529
  Receipt Date: 20120517
  Transmission Date: 20120825
  Serious: Yes (Hospitalization, Disabling, Other)
  Sender: FDA-Public Use
  Company Number: US-ELI_LILLY_AND_COMPANY-US201204009717

PATIENT
  Sex: Male

DRUGS (17)
  1. HUMAN INSULIN [Suspect]
     Indication: TYPE 1 DIABETES MELLITUS
     Dosage: 10 U, EACH MORNING
     Route: 058
     Dates: start: 19570101, end: 20110701
  2. HUMAN INSULIN [Suspect]
     Dosage: 2 U, WITH DINNER
     Route: 058
     Dates: start: 19570101, end: 20110701
  3. HUMALOG [Suspect]
     Dosage: 2 U, WITH DINNER
     Dates: start: 20110701
  4. BYSTOLIC [Concomitant]
     Dosage: 5 MG, QD
  5. LOVAZA [Concomitant]
     Dosage: UNK
  6. LOTREL [Concomitant]
     Dosage: UNK, QD
  7. MICARDIS [Concomitant]
     Dosage: 40 MG, QD
  8. ASPIRIN [Concomitant]
     Dosage: 81 MG, QD
  9. SYNTHROID [Concomitant]
     Dosage: 88 MG, QD
  10. HUMALOG [Suspect]
     Indication: TYPE 1 DIABETES MELLITUS
     Dosage: 13 U, EACH MORNING
     Dates: start: 20110701
  11. HUMALOG [Suspect]
     Dosage: UNK, PRN AT LUNCHTIME
     Dates: start: 20110701
  12. LIPITOR [Concomitant]
     Dosage: 40 MG, QD
  13. PLAVIX [Concomitant]
     Dosage: 75 MG, QD
  14. FLOMAX [Concomitant]
     Dosage: 0.4 MG, QD
  15. VITAMIN D [Concomitant]
     Dosage: UNK
  16. COQ-10 [Concomitant]
     Dosage: UNK
  17. LEVEMIR [Concomitant]
     Dosage: 4 U, BID

REACTIONS (9)
  - LEG AMPUTATION [None]
  - BALANCE DISORDER [None]
  - VASCULAR GRAFT [None]
  - VASCULAR GRAFT OCCLUSION [None]
  - BLOOD GLUCOSE FLUCTUATION [None]
  - MUSCLE DISORDER [None]
  - MYOCARDIAL INFARCTION [None]
  - FALL [None]
  - RENAL FAILURE CHRONIC [None]
